FAERS Safety Report 6034837-2 (Version None)
Quarter: 2009Q1

REPORT INFORMATION
  Report Type: 
  Country: None (occurrence: None)
  Receive Date: 20090108
  Receipt Date: 20090108
  Transmission Date: 20090719
  Serious: Yes (Disabling)
  Sender: FDA-Public Use
  Company Number: None

PATIENT
  Age: 38 Year
  Sex: Male
  Weight: 92.9874 kg

DRUGS (2)
  1. SEROQUEL [Suspect]
     Indication: BIPOLAR DISORDER
     Dates: start: 20070415, end: 20080106
  2. SEROQUEL [Suspect]
     Indication: DEPRESSION
     Dates: start: 20070415, end: 20080106

REACTIONS (2)
  - HYPERGLYCAEMIA [None]
  - WEIGHT INCREASED [None]
